FAERS Safety Report 10197144 (Version 1)
Quarter: 2014Q2

REPORT INFORMATION
  Report Type: Spontaneous
  Country: US (occurrence: None)
  Receive Date: 20140523
  Receipt Date: 20140523
  Transmission Date: 20141212
  Serious: Yes (Life-Threatening, Other)
  Sender: FDA-Public Use
  Company Number: None

PATIENT
  Age: 27 Year
  Sex: Female
  Weight: 70.31 kg

DRUGS (2)
  1. MINOCYCLINE [Suspect]
     Indication: ACNE
     Dosage: TAKEN BY MOUTH
     Dates: start: 20140516, end: 20140518
  2. MINOCYCLINE [Suspect]
     Indication: RASH
     Dosage: TAKEN BY MOUTH
     Dates: start: 20140516, end: 20140518

REACTIONS (10)
  - Diarrhoea [None]
  - Nausea [None]
  - Vomiting [None]
  - Histrionic personality disorder [None]
  - Suicidal ideation [None]
  - Fear of death [None]
  - Panic attack [None]
  - Tremor [None]
  - Paranoia [None]
  - Mental impairment [None]
